FAERS Safety Report 5028096-7 (Version None)
Quarter: 2006Q2

REPORT INFORMATION
  Report Type: 
  Country: None (occurrence: None)
  Receive Date: 20060501
  Receipt Date: 20060112
  Transmission Date: 20061013
  Serious: No
  Sender: FDA-Public Use
  Company Number: 200610462US

PATIENT
  Age: 58 Year
  Sex: Female

DRUGS (1)
  1. KETEK [Suspect]
     Indication: INFLUENZA
     Dosage: 800 MG QD
     Dates: start: 20051101

REACTIONS (4)
  - DYSPNOEA [None]
  - HEADACHE [None]
  - HEART RATE INCREASED [None]
  - INSOMNIA [None]
